FAERS Safety Report 26103743 (Version 1)
Quarter: 2025Q4

REPORT INFORMATION
  Report Type: Spontaneous
  Country: US (occurrence: US)
  Receive Date: 20251129
  Receipt Date: 20251129
  Transmission Date: 20260118
  Serious: No
  Sender: UNITED THERAPEUTICS
  Company Number: US-UNITED THERAPEUTICS-UNT-2025-040159

PATIENT
  Age: 60 Year
  Sex: Male

DRUGS (1)
  1. REMODULIN [Suspect]
     Active Substance: TREPROSTINIL
     Indication: Product used for unknown indication
     Dosage: UNK, CONTINUING

REACTIONS (4)
  - Device use error [Unknown]
  - Electromagnetic interference [Unknown]
  - Device issue [Not Recovered/Not Resolved]
  - Device infusion issue [Not Recovered/Not Resolved]

NARRATIVE: CASE EVENT DATE: 20251120
